FAERS Safety Report 5215683-6 (Version None)
Quarter: 2007Q1

REPORT INFORMATION
  Report Type: 
  Country: None (occurrence: None)
  Receive Date: 20070123
  Receipt Date: 20070111
  Transmission Date: 20070707
  Serious: Yes (Life-Threatening)
  Sender: FDA-Public Use
  Company Number: JP-ROCHE-477043

PATIENT
  Age: 69 Year
  Sex: Male

DRUGS (16)
  1. PANALDINE [Suspect]
     Dosage: OTHER INDICATION: CORONARY ARTERY BYPASS/ POSTSURGICAL STATE.
     Route: 048
     Dates: start: 20011211, end: 20011220
  2. PANALDINE [Suspect]
     Dosage: STRENGTH REPORTED AS 100 MG FOR THIS SECOND THERAPY.
     Route: 048
     Dates: start: 20011225, end: 20020103
  3. BUFFERIN [Suspect]
     Indication: CORONARY ARTERY BYPASS
     Dosage: GENERIC NAME REPORTED AS ^ACETYLSALICYLIC ACID). OTHER REPORTED INDICATION: POSTSURGICAL STATE.
     Route: 065
     Dates: start: 20011215, end: 20011220
  4. BUFFERIN [Suspect]
     Route: 065
     Dates: start: 20011225, end: 20020103
  5. WARFARIN SODIUM [Suspect]
     Indication: CORONARY ARTERY BYPASS
     Dosage: OTHER REPORTED INDICATION: POSTSURGICAL STATE
     Route: 048
     Dates: start: 20011124, end: 20011206
  6. WARFARIN SODIUM [Suspect]
     Route: 048
     Dates: start: 20011225, end: 20020103
  7. AMLODIPINE BESYLATE [Concomitant]
     Indication: HYPERTENSION
     Dosage: GENERIC NAME REPORTED AS AMLODIPINE BESILATE.
     Route: 048
     Dates: start: 20011205
  8. ADALAT [Concomitant]
     Indication: HYPERTENSION
     Dosage: DOSE REPORTED AS 40 MG.
     Route: 048
     Dates: start: 20011216, end: 20020204
  9. NU-LOTAN [Concomitant]
     Indication: HYPERTENSION
     Dosage: GENERIC NAME REPORTED AS LOSARTAN POTASSIUM.
     Route: 048
     Dates: start: 20011116
  10. GASTER D [Concomitant]
     Dosage: DOSE REPORTED AS 20 MG.
     Route: 048
     Dates: start: 20011116
  11. ARTIST [Concomitant]
     Indication: HYPERTENSION
     Dosage: DOSE REPORTED AS 20 MG.
     Route: 048
     Dates: start: 20011116
  12. ITOROL [Concomitant]
     Dosage: DOSE REPORTED AS 2 UNIT.
     Route: 048
     Dates: start: 20011116
  13. MIYA BM [Concomitant]
     Dosage: DOSE REPORTED AS 3 GRAM.
     Route: 048
     Dates: start: 20011116
  14. MAGNESIUM OXIDE [Concomitant]
     Dosage: DOSE REPORTED AS 0.9 GRAM.
     Route: 048
     Dates: start: 20011116
  15. 1 CONCOMITANT DRUG [Concomitant]
     Dosage: DRUG NAME REPORTED AS RED BLOOD CELLS.
     Dates: start: 20011118, end: 20011220
  16. PLASMA PROTEIN FRACTION (HUMAN) [Concomitant]
     Dates: start: 20011118, end: 20011220

REACTIONS (4)
  - BLUE TOE SYNDROME [None]
  - FAT EMBOLISM [None]
  - LIVER DISORDER [None]
  - SHOCK [None]
